FAERS Safety Report 22198126 (Version 1)
Quarter: 2023Q2

REPORT INFORMATION
  Report Type: Report from Study
  Country: CA (occurrence: CA)
  Receive Date: 20230411
  Receipt Date: 20230411
  Transmission Date: 20230721
  Serious: Yes (Other)
  Sender: FDA-Public Use
  Company Number: CA-TAKEDA-2020TUS019055

PATIENT
  Age: 70 Year
  Sex: Male

DRUGS (31)
  1. IXAZOMIB [Suspect]
     Active Substance: IXAZOMIB
     Indication: Plasma cell myeloma
     Dosage: 2.3 MILLIGRAM
     Route: 048
     Dates: start: 20200324
  2. IXAZOMIB [Suspect]
     Active Substance: IXAZOMIB
     Dosage: 2.3 MILLIGRAM
     Route: 048
     Dates: start: 20200421
  3. DEXAMETHASONE [Suspect]
     Active Substance: DEXAMETHASONE
     Indication: Plasma cell myeloma
     Dosage: UNK
     Route: 065
     Dates: start: 20200324
  4. CYCLOPHOSPHAMIDE [Suspect]
     Active Substance: CYCLOPHOSPHAMIDE
     Indication: Plasma cell myeloma
     Dosage: UNK
     Route: 065
     Dates: start: 20200324
  5. RAMIPRIL [Concomitant]
     Active Substance: RAMIPRIL
     Dosage: UNK
     Route: 065
     Dates: start: 201911
  6. BISOPROLOL [Concomitant]
     Active Substance: BISOPROLOL
     Dosage: 1.25 MILLIGRAM, QD
     Route: 048
     Dates: start: 201911
  7. PAMIDRONATE [Concomitant]
     Active Substance: PAMIDRONATE DISODIUM
     Indication: Hypercalcaemia
     Dosage: 60 MILLIGRAM
     Route: 065
     Dates: start: 20190820
  8. ACYCLOVIR                          /00587301/ [Concomitant]
     Indication: Antiviral prophylaxis
     Dosage: 400 MILLIGRAM, BID
     Route: 048
     Dates: start: 20190827
  9. ACYCLOVIR                          /00587301/ [Concomitant]
     Indication: Premedication
  10. PANTOPRAZOLE [Concomitant]
     Active Substance: PANTOPRAZOLE
     Indication: Prophylaxis against gastrointestinal ulcer
     Dosage: 40 MILLIGRAM, QD
     Route: 048
     Dates: start: 20190827, end: 20200611
  11. ZOMETA [Concomitant]
     Active Substance: ZOLEDRONIC ACID
     Dosage: 4 MILLIGRAM, Q4WEEKS
     Route: 042
     Dates: start: 20191126
  12. ZOMETA [Concomitant]
     Active Substance: ZOLEDRONIC ACID
     Dosage: 3.3 MILLIGRAM
     Route: 042
     Dates: start: 20200218
  13. ZOMETA [Concomitant]
     Active Substance: ZOLEDRONIC ACID
     Dosage: 3.3 MILLIGRAM, Q4WEEKS
     Route: 042
     Dates: start: 20200317
  14. ASPIRIN [Concomitant]
     Active Substance: ASPIRIN
     Dosage: 81 MILLIGRAM, QD
     Route: 048
     Dates: start: 20200320
  15. EDOXABAN TOSYLATE [Concomitant]
     Active Substance: EDOXABAN TOSYLATE
     Indication: Thrombosis
     Dosage: 60 MILLIGRAM, QD
     Route: 065
     Dates: end: 20200505
  16. CRESTOR [Concomitant]
     Active Substance: ROSUVASTATIN CALCIUM
     Dosage: 20 MILLIGRAM, QD
     Route: 048
  17. HYDROMORPHONE [Concomitant]
     Active Substance: HYDROMORPHONE
     Indication: Pain
     Dosage: UNK UNK, TID
     Route: 048
     Dates: start: 20200519
  18. MIRTAZAPINE [Concomitant]
     Active Substance: MIRTAZAPINE
     Indication: Depression
     Dosage: UNK
     Route: 065
     Dates: start: 201912
  19. MIRTAZAPINE [Concomitant]
     Active Substance: MIRTAZAPINE
     Dosage: 30 MILLIGRAM, QD
     Route: 048
     Dates: start: 20200519
  20. METHYLPHENIDATE [Concomitant]
     Active Substance: METHYLPHENIDATE
     Dosage: 10 MILLIGRAM, BID
     Route: 048
     Dates: start: 20200519
  21. VITAMIN D                          /00107901/ [Concomitant]
     Dosage: UNK UNK, QD
     Route: 048
     Dates: start: 20200519
  22. VITAMIN B12 [Concomitant]
     Active Substance: CYANOCOBALAMIN
     Dosage: 1000 MICROGRAM, QD
     Route: 048
     Dates: start: 20200612
  23. METOCLOPRAMIDE [Concomitant]
     Active Substance: METOCLOPRAMIDE
     Indication: Hiccups
     Dosage: 5 MILLIGRAM, QD
     Dates: start: 20200612
  24. LACTULOSE [Concomitant]
     Active Substance: LACTULOSE
     Dosage: UNK
     Route: 065
     Dates: start: 20200612
  25. MAGNESIUM [Concomitant]
     Active Substance: MAGNESIUM
     Dosage: 150 MILLIGRAM, QD
     Route: 048
  26. TIMOLOL MALEATE\TRAVOPROST [Concomitant]
     Active Substance: TIMOLOL MALEATE\TRAVOPROST
     Dosage: 1 GTT DROPS, QD
     Route: 065
  27. ONDANSETRON [Concomitant]
     Active Substance: ONDANSETRON
     Dosage: 16 MILLIGRAM, 1/WEEK
     Route: 065
     Dates: start: 20200417
  28. PROCHLORPERAZINE [Concomitant]
     Active Substance: PROCHLORPERAZINE
     Indication: Prophylaxis of nausea and vomiting
     Dosage: 10 MILLIGRAM
     Route: 065
  29. XGEVA [Concomitant]
     Active Substance: DENOSUMAB
     Dosage: 120 MILLIGRAM
     Route: 065
     Dates: start: 20210428
  30. CALCIUM [Concomitant]
     Active Substance: CALCIUM
     Dosage: UNK
     Route: 065
  31. PERINDOPRIL [Concomitant]
     Active Substance: PERINDOPRIL
     Indication: Cardiac dysfunction
     Dosage: 2 MILLIGRAM, QD
     Route: 065

REACTIONS (11)
  - Plasma cell myeloma [Recovered/Resolved]
  - Neuropathy peripheral [Unknown]
  - Somnolence [Unknown]
  - Pyogenic granuloma [Recovered/Resolved]
  - Osteoarthritis [Not Recovered/Not Resolved]
  - Sleep apnoea syndrome [Unknown]
  - Limb injury [Not Recovered/Not Resolved]
  - Malaise [Unknown]
  - Fatigue [Unknown]
  - Rash [Unknown]
  - Off label use [Unknown]

NARRATIVE: CASE EVENT DATE: 20230406
